FAERS Safety Report 9937921 (Version 1)
Quarter: 2014Q1

REPORT INFORMATION
  Report Type: Spontaneous
  Country: US (occurrence: US)
  Receive Date: 20140303
  Receipt Date: 20140303
  Transmission Date: 20141002
  Serious: No
  Sender: FDA-Public Use
  Company Number: US-BIOGENIDEC-2014BI016953

PATIENT
  Sex: Male

DRUGS (7)
  1. TECFIDERA [Suspect]
     Indication: MULTIPLE SCLEROSIS
     Route: 048
     Dates: start: 201305
  2. ASPIRIN EC [Concomitant]
  3. DILTIAZEM ER [Concomitant]
  4. FLECAINIDE ACETATE [Concomitant]
  5. LISINOPRIL [Concomitant]
  6. PRAVASTATIN SODIUM [Concomitant]
  7. VITAMIN B-12 [Concomitant]

REACTIONS (4)
  - Musculoskeletal discomfort [Unknown]
  - Limb discomfort [Unknown]
  - Anxiety [Unknown]
  - Pruritus [Unknown]
